FAERS Safety Report 21027788 (Version 3)
Quarter: 2022Q3

REPORT INFORMATION
  Report Type: Spontaneous
  Country: CN (occurrence: CN)
  Receive Date: 20220630
  Receipt Date: 20220728
  Transmission Date: 20221026
  Serious: Yes (Other)
  Sender: FDA-Public Use
  Company Number: CN-BAYER-2022A086866

PATIENT
  Age: 79 Year
  Sex: Female

DRUGS (5)
  1. GLUCOBAY [Interacting]
     Active Substance: ACARBOSE
     Indication: Diabetes mellitus
     Dosage: UNK
     Route: 048
     Dates: start: 1992
  2. GLUCOBAY [Interacting]
     Active Substance: ACARBOSE
     Indication: Diabetes mellitus
     Dosage: 6 DF, QD
     Route: 048
  3. REPAGLINIDE [Interacting]
     Active Substance: REPAGLINIDE
     Indication: Diabetes mellitus
     Route: 048
  4. DAN SHEN COMPOUND [Concomitant]
     Route: 048
  5. NITROGLYCERIN [Concomitant]
     Active Substance: NITROGLYCERIN

REACTIONS (11)
  - Cerebral ischaemia [Recovered/Resolved]
  - Loss of consciousness [Recovered/Resolved]
  - Breast cancer female [Recovering/Resolving]
  - Bronchioloalveolar carcinoma [Recovering/Resolving]
  - Musculoskeletal disorder [None]
  - Hypoglycaemia [Recovered/Resolved]
  - Fall [Recovered/Resolved]
  - Tooth loss [Recovered/Resolved]
  - Face injury [Recovered/Resolved]
  - Tremor [Recovered/Resolved]
  - Hypertension [Recovering/Resolving]
